FAERS Safety Report 21462457 (Version 1)
Quarter: 2022Q4

REPORT INFORMATION
  Report Type: Spontaneous
  Country: US (occurrence: None)
  Receive Date: 20221014
  Receipt Date: 20221014
  Transmission Date: 20230113
  Serious: Yes (Life-Threatening, Hospitalization)
  Sender: FDA-Public Use
  Company Number: None

PATIENT
  Age: 80 Year
  Sex: Male
  Weight: 74 kg

DRUGS (1)
  1. HALOPERIDOL [Suspect]
     Active Substance: HALOPERIDOL
     Indication: Agitation
     Dosage: FREQUENCY : ONCE;?
     Route: 030
     Dates: start: 20220714, end: 20220714

REACTIONS (3)
  - Confusional state [None]
  - Parkinson^s disease [None]
  - Hypertension [None]

NARRATIVE: CASE EVENT DATE: 20220714
